FAERS Safety Report 19164467 (Version 1)
Quarter: 2021Q2

REPORT INFORMATION
  Report Type: Report from Study
  Country: MY (occurrence: MY)
  Receive Date: 20210421
  Receipt Date: 20210421
  Transmission Date: 20210717
  Serious: Yes (Hospitalization)
  Sender: FDA-Public Use
  Company Number: MY-JNJFOC-20200720919

PATIENT
  Age: 59 Year
  Sex: Male

DRUGS (1)
  1. ESKETAMINE [Suspect]
     Active Substance: ESKETAMINE
     Indication: DEPRESSION
     Dates: start: 20170726, end: 20200703

REACTIONS (1)
  - Urethral stenosis [Recovered/Resolved]

NARRATIVE: CASE EVENT DATE: 20200707
